FAERS Safety Report 8462602-5 (Version None)
Quarter: 2012Q2

REPORT INFORMATION
  Report Type: 
  Country: None (occurrence: None)
  Receive Date: 20120625
  Receipt Date: 20120619
  Transmission Date: 20120825
  Serious: Yes (Life-Threatening)
  Sender: FDA-Public Use
  Company Number: FR-ASTRAZENECA-2012SE41488

PATIENT
  Sex: Male

DRUGS (7)
  1. CRESTOR [Suspect]
     Route: 048
     Dates: start: 20120518, end: 20120524
  2. ZOLPIDEM [Concomitant]
  3. BISOPROLOL FUMARATE [Suspect]
     Route: 048
     Dates: start: 20120401, end: 20120524
  4. FLUTICASONE PROPIONATE/SALMETEROL [Concomitant]
  5. IRBESARTAN [Concomitant]
  6. CRESTOR [Suspect]
     Indication: DYSLIPIDAEMIA
     Route: 048
     Dates: start: 20100101, end: 20120401
  7. PENTOXIFYLLINE [Suspect]
     Route: 048
     Dates: start: 20120401, end: 20120524

REACTIONS (1)
  - STEVENS-JOHNSON SYNDROME [None]
